FAERS Safety Report 6385378-4 (Version None)
Quarter: 2009Q4

REPORT INFORMATION
  Report Type: 
  Country: None (occurrence: None)
  Receive Date: 20091002
  Receipt Date: 20080929
  Transmission Date: 20100525
  Serious: No
  Sender: FDA-Public Use
  Company Number: US-ASTRAZENECA-2008UW18235

PATIENT
  Age: 56 Year
  Sex: Female
  Weight: 63.5 kg

DRUGS (1)
  1. ARIMIDEX [Suspect]
     Indication: BREAST CANCER
     Route: 048
     Dates: start: 20080201

REACTIONS (6)
  - ALOPECIA [None]
  - BREAST NEOPLASM [None]
  - DIARRHOEA [None]
  - HAIR GROWTH ABNORMAL [None]
  - HOT FLUSH [None]
  - ONYCHOCLASIS [None]
